FAERS Safety Report 7570754-4 (Version None)
Quarter: 2011Q2

REPORT INFORMATION
  Report Type: 
  Country: None (occurrence: None)
  Receive Date: 20110624
  Receipt Date: 20110617
  Transmission Date: 20111010
  Serious: Yes (Death, Life-Threatening, Hospitalization)
  Sender: FDA-Public Use
  Company Number: JP-ELI_LILLY_AND_COMPANY-JP201104005603

PATIENT
  Sex: Male
  Weight: 57.6 kg

DRUGS (12)
  1. ZOSYN [Concomitant]
     Dosage: 4.5 G, UNK
     Route: 042
     Dates: start: 20110203
  2. TEGRETOL [Concomitant]
     Dosage: UNK
     Route: 048
     Dates: end: 20110224
  3. OXYCONTIN [Concomitant]
     Dosage: 2 DF, UNK
     Route: 048
     Dates: end: 20110308
  4. PARAPLATIN [Concomitant]
     Indication: LUNG SQUAMOUS CELL CARCINOMA STAGE IV
     Dosage: 320 MG, UNK
     Route: 042
     Dates: start: 20110204, end: 20110204
  5. RAMELTEON [Concomitant]
     Dosage: 0.3 MG, UNK
     Route: 042
     Dates: start: 20110204
  6. MAGNESIUM OXIDE [Concomitant]
     Dosage: 3 DF, UNK
     Route: 048
  7. PRIMPERAN TAB [Concomitant]
     Dosage: 3 DF, UNK
     Route: 048
  8. MUCOSTA [Concomitant]
     Dosage: 3 DF, UNK
     Route: 048
     Dates: end: 20110224
  9. METFORMIN HCL [Concomitant]
     Dosage: 2 DF, UNK
     Route: 048
     Dates: end: 20110224
  10. DECADRON                                /NET/ [Concomitant]
     Dosage: 9.9 MG, UNK
     Route: 042
     Dates: start: 20110204
  11. ETODOLAC [Concomitant]
     Dosage: 2 DF, UNK
     Route: 048
  12. GEMZAR [Suspect]
     Indication: LUNG SQUAMOUS CELL CARCINOMA STAGE IV
     Dosage: 1600 MG, UNK
     Route: 042
     Dates: start: 20110204, end: 20110204

REACTIONS (5)
  - IDIOPATHIC THROMBOCYTOPENIC PURPURA [None]
  - SPINAL COMPRESSION FRACTURE [None]
  - FEBRILE NEUTROPENIA [None]
  - DISEASE PROGRESSION [None]
  - ROAD TRAFFIC ACCIDENT [None]
